FAERS Safety Report 23910794 (Version 1)
Quarter: 2024Q2

REPORT INFORMATION
  Report Type: Spontaneous
  Country: US (occurrence: US)
  Receive Date: 20240528
  Receipt Date: 20240528
  Transmission Date: 20240716
  Serious: No
  Sender: FDA-Public Use
  Company Number: US-AVADEL CNS PHARMACEUTICALS, LLC-2024AVA00402

PATIENT
  Sex: Female

DRUGS (3)
  1. LUMRYZ [Suspect]
     Active Substance: SODIUM OXYBATE
     Indication: Narcolepsy
     Dosage: 4.5 G
     Dates: start: 20240308, end: 20240310
  2. PAXIL [Concomitant]
     Active Substance: PAROXETINE HYDROCHLORIDE
     Dosage: 10 MG, 1X/DAY
  3. SPIRONOLACTONE [Concomitant]
     Active Substance: SPIRONOLACTONE
     Dosage: 100 MG, 1X/DAY AT BEDTIME

REACTIONS (6)
  - Crying [Recovering/Resolving]
  - Irritability [Recovering/Resolving]
  - Feeling abnormal [Recovering/Resolving]
  - Decreased interest [Recovering/Resolving]
  - Depression [Recovering/Resolving]
  - Drug effect less than expected [Recovered/Resolved]

NARRATIVE: CASE EVENT DATE: 20240308
